FAERS Safety Report 8573114-2 (Version None)
Quarter: 2012Q3

REPORT INFORMATION
  Report Type: 
  Country: None (occurrence: None)
  Receive Date: 20120806
  Receipt Date: 20120802
  Transmission Date: 20120928
  Serious: Yes (Death)
  Sender: FDA-Public Use
  Company Number: US-ACTELION-A-NJ2012-69027

PATIENT
  Age: 66 Year
  Sex: Female

DRUGS (2)
  1. SILDENAFIL [Concomitant]
  2. VENTAVIS [Suspect]
     Indication: PULMONARY ARTERIAL HYPERTENSION
     Dosage: 5 UG, 4-6 TIMES DAILY
     Route: 055
     Dates: start: 20120627, end: 20120719

REACTIONS (5)
  - DEATH [None]
  - FALL [None]
  - MALAISE [None]
  - NAUSEA [None]
  - DYSPNOEA [None]
